FAERS Safety Report 21134447 (Version 1)
Quarter: 2022Q3

REPORT INFORMATION
  Report Type: Report from Study
  Country: NL (occurrence: NL)
  Receive Date: 20220726
  Receipt Date: 20220726
  Transmission Date: 20221027
  Serious: Yes (Other)
  Sender: FDA-Public Use
  Company Number: NL-ABBVIE-22K-114-4472767-00

PATIENT
  Sex: Male

DRUGS (7)
  1. CARBIDOPA\LEVODOPA [Suspect]
     Active Substance: CARBIDOPA\LEVODOPA
     Indication: Parkinson^s disease
     Dosage: MD: 9.0ML, CD: 3.1ML/H, ED: 1.0ML
     Route: 050
     Dates: start: 20220215, end: 2022
  2. CARBIDOPA\LEVODOPA [Suspect]
     Active Substance: CARBIDOPA\LEVODOPA
     Dosage: MD: 10.0ML, CD: 3.5ML/H, ED: 1.4ML
     Route: 050
     Dates: start: 2022, end: 2022
  3. CARBIDOPA\LEVODOPA [Suspect]
     Active Substance: CARBIDOPA\LEVODOPA
     Dosage: MD: 11.0ML, CD: 3.5ML/H, ED: 1.5ML
     Route: 050
     Dates: start: 2022, end: 2022
  4. CARBIDOPA\LEVODOPA [Suspect]
     Active Substance: CARBIDOPA\LEVODOPA
     Dosage: MD: 11.5ML, CD: 3.5ML/H, ED: 1.5ML
     Route: 050
     Dates: start: 2022, end: 2022
  5. CARBIDOPA\LEVODOPA [Suspect]
     Active Substance: CARBIDOPA\LEVODOPA
     Dosage: MD: 13.0ML, CD: 4.2ML/H, ED: 2.0ML
     Route: 050
     Dates: start: 2022, end: 2022
  6. CARBIDOPA\LEVODOPA [Suspect]
     Active Substance: CARBIDOPA\LEVODOPA
     Dosage: ED: 3.0ML
     Route: 050
     Dates: start: 2022, end: 2022
  7. CARBIDOPA\LEVODOPA [Suspect]
     Active Substance: CARBIDOPA\LEVODOPA
     Dosage: MD 13.0 ML; CD 4.5 ML/H; ED 3.0 ML
     Route: 050
     Dates: start: 2022

REACTIONS (11)
  - Eyelid operation [Not Recovered/Not Resolved]
  - Device dislocation [Unknown]
  - Stoma site irritation [Not Recovered/Not Resolved]
  - Pain [Recovering/Resolving]
  - Constipation [Recovering/Resolving]
  - Hallucination [Not Recovered/Not Resolved]
  - Stoma site inflammation [Recovering/Resolving]
  - Medical device site scab [Not Recovered/Not Resolved]
  - Malaise [Not Recovered/Not Resolved]
  - On and off phenomenon [Not Recovered/Not Resolved]
  - Dyskinesia [Unknown]

NARRATIVE: CASE EVENT DATE: 20220101
